FAERS Safety Report 5044971-1 (Version None)
Quarter: 2006Q3

REPORT INFORMATION
  Report Type: 
  Country: None (occurrence: None)
  Receive Date: 20060707
  Receipt Date: 20060627
  Transmission Date: 20061208
  Serious: Yes (Hospitalization)
  Sender: FDA-Public Use
  Company Number: US-JNJFOC-20060605822

PATIENT
  Sex: Male
  Weight: 113.4 kg

DRUGS (1)
  1. REMICADE [Suspect]
     Indication: RHEUMATOID ARTHRITIS
     Route: 042

REACTIONS (3)
  - BLOOD GLUCOSE DECREASED [None]
  - HYPOTENSION [None]
  - MOBILITY DECREASED [None]
